FAERS Safety Report 6542517-X (Version None)
Quarter: 2010Q1

REPORT INFORMATION
  Report Type: 
  Country: None (occurrence: None)
  Receive Date: 20100119
  Receipt Date: 20100107
  Transmission Date: 20100710
  Serious: Yes (Other)
  Sender: FDA-Public Use
  Company Number: JP-PFIZER INC-2009295273

PATIENT
  Age: 69 Year
  Sex: Male
  Weight: 57.7 kg

DRUGS (13)
  1. SUNITINIB MALATE [Suspect]
     Indication: RENAL CELL CARCINOMA
     Dosage: 50 MG, 1X/DAY
     Route: 048
     Dates: start: 20090817, end: 20091111
  2. SUNITINIB MALATE [Suspect]
     Dosage: 37.5 MG, 1X/DAY
     Route: 048
     Dates: start: 20091021, end: 20091111
  3. DIOVAN [Concomitant]
     Dosage: UNK MG, 1X/DAY
     Route: 048
     Dates: start: 20090820, end: 20091116
  4. AMLODIPINE [Concomitant]
     Dosage: UNK
     Route: 048
  5. ADONA [Concomitant]
     Dosage: UNK
     Route: 048
     Dates: end: 20091021
  6. CARNACULIN [Concomitant]
     Dosage: UNK
     Route: 048
  7. REMICUT [Concomitant]
     Dosage: UNK
     Route: 048
  8. ATARAX [Concomitant]
     Dosage: UNK
     Route: 048
  9. LAC B [Concomitant]
     Dosage: UNK
     Route: 048
     Dates: end: 20091021
  10. MYSER [Concomitant]
     Dosage: UNK
     Route: 062
  11. RESTAMIN [Concomitant]
     Dosage: UNK
     Route: 062
  12. FULMETA [Concomitant]
     Dosage: UNK
     Route: 062
  13. KERATINAMIN [Concomitant]
     Dosage: UNK
     Route: 062
     Dates: start: 20090826, end: 20090918

REACTIONS (3)
  - BLOOD CREATINE PHOSPHOKINASE INCREASED [None]
  - HYPERTENSION [None]
  - VITREOUS HAEMORRHAGE [None]
